FAERS Safety Report 16214004 (Version 1)
Quarter: 2019Q2

REPORT INFORMATION
  Report Type: Spontaneous
  Country: GB (occurrence: GB)
  Receive Date: 20190418
  Receipt Date: 20190418
  Transmission Date: 20190711
  Serious: Yes (Hospitalization)
  Sender: FDA-Public Use
  Company Number: GB-NOVOPROD-651196

PATIENT
  Age: 26 Year
  Sex: Female
  Weight: 90 kg

DRUGS (2)
  1. NOVORAPID [Suspect]
     Active Substance: INSULIN ASPART
     Indication: TYPE 1 DIABETES MELLITUS
     Dosage: 35 IU, QD
     Route: 058
     Dates: start: 20190304, end: 20190305
  2. NOVORAPID [Suspect]
     Active Substance: INSULIN ASPART
     Dosage: 44.4 BASAL BOLUS VARIES
     Route: 058

REACTIONS (4)
  - Diabetic ketoacidosis [Recovered/Resolved]
  - Exposure during pregnancy [Unknown]
  - Product physical issue [Unknown]
  - Product leakage [Unknown]

NARRATIVE: CASE EVENT DATE: 20190305
